FAERS Safety Report 20512738 (Version 1)
Quarter: 2022Q1

REPORT INFORMATION
  Report Type: Spontaneous
  Country: US (occurrence: None)
  Receive Date: 20220224
  Receipt Date: 20220224
  Transmission Date: 20220423
  Serious: No
  Sender: FDA-Public Use
  Company Number: None

PATIENT
  Age: 51 Year
  Sex: Female
  Weight: 117 kg

DRUGS (1)
  1. CIPROFLOXACIN [Suspect]
     Active Substance: CIPROFLOXACIN
     Indication: Urinary tract infection
     Dates: start: 20220223, end: 20220223

REACTIONS (6)
  - Dysarthria [None]
  - Headache [None]
  - Muscle tightness [None]
  - Vision blurred [None]
  - Hypoaesthesia [None]
  - Therapy cessation [None]

NARRATIVE: CASE EVENT DATE: 20220223
